FAERS Safety Report 23118075 (Version 4)
Quarter: 2025Q3

REPORT INFORMATION
  Report Type: Report from Study
  Country: CN (occurrence: CN)
  Receive Date: 20231027
  Receipt Date: 20250729
  Transmission Date: 20251020
  Serious: Yes (Hospitalization, Other)
  Sender: EISAI
  Company Number: CN-Eisai-EC-2023-151214

PATIENT
  Age: 61 Year
  Sex: Male

DRUGS (7)
  1. LENVATINIB [Suspect]
     Active Substance: LENVATINIB
     Indication: Hepatocellular carcinoma
     Dates: start: 20230908, end: 20230917
  2. LENVATINIB [Suspect]
     Active Substance: LENVATINIB
     Dates: start: 20231018, end: 20231125
  3. DURVALUMAB [Suspect]
     Active Substance: DURVALUMAB
     Indication: Hepatocellular carcinoma
     Dates: start: 20230908, end: 20230908
  4. TREMELIMUMAB [Suspect]
     Active Substance: TREMELIMUMAB
     Indication: Hepatocellular carcinoma
     Dates: start: 20230908, end: 20230908
  5. 1. ENTECAVIR [Concomitant]
     Indication: Chronic hepatitis B
  6. PYRIDOXINE HYDROCHLORIDE [Concomitant]
     Active Substance: PYRIDOXINE HYDROCHLORIDE
  7. POLAPREZINC [Concomitant]
     Active Substance: POLAPREZINC

REACTIONS (2)
  - Thrombocytopenia [Recovered/Resolved]
  - Hepatic function abnormal [Recovered/Resolved]

NARRATIVE: CASE EVENT DATE: 20230918
